FAERS Safety Report 25360807 (Version 2)
Quarter: 2025Q2

REPORT INFORMATION
  Report Type: Spontaneous
  Country: US (occurrence: US)
  Receive Date: 20250527
  Receipt Date: 20250617
  Transmission Date: 20250717
  Serious: No
  Sender: BIOLOGICAL E. LIMITED
  Company Number: US-BELUSA-2025BELSPO0028

PATIENT

DRUGS (1)
  1. ENOXAPARIN SODIUM [Suspect]
     Active Substance: ENOXAPARIN SODIUM
     Indication: Product used for unknown indication
     Route: 065
     Dates: start: 20250509

REACTIONS (3)
  - Injury associated with device [Unknown]
  - Occupational exposure to product [Unknown]
  - Device malfunction [Unknown]

NARRATIVE: CASE EVENT DATE: 20250509
